FAERS Safety Report 7997710-6 (Version None)
Quarter: 2011Q4

REPORT INFORMATION
  Report Type: 
  Country: None (occurrence: None)
  Receive Date: 20111221
  Receipt Date: 20111221
  Transmission Date: 20120403
  Serious: Yes (Other)
  Sender: FDA-Public Use
  Company Number: AT-BAYER-2011-122220

PATIENT
  Age: 68 Year
  Sex: Female

DRUGS (3)
  1. SORAFENIB (RAF KINASE INHIBITOR) [Suspect]
     Indication: MALIGNANT HISTIOCYTOSIS
     Dosage: 400 MG, BID, LOW DOSE MAINTENANCE THERAPY
     Route: 048
  2. ANTINEOPLASTIC AGENTS [Concomitant]
     Indication: MALIGNANT HISTIOCYTOSIS
  3. BEVACIZUMAB [Concomitant]
     Indication: MALIGNANT HISTIOCYTOSIS
     Dosage: 2 CYCLES

REACTIONS (1)
  - PANCREATIC ENZYMES INCREASED [None]
